FAERS Safety Report 17297758 (Version 2)
Quarter: 2020Q2

REPORT INFORMATION
  Report Type: Report from Study
  Country: CA (occurrence: CA)
  Receive Date: 20200121
  Receipt Date: 20200410
  Transmission Date: 20200713
  Serious: Yes (Hospitalization)
  Sender: FDA-Public Use
  Company Number: NVSC2019CA041366

PATIENT
  Age: 68 Year
  Sex: Male

DRUGS (1)
  1. REVOLADE [Suspect]
     Active Substance: ELTROMBOPAG
     Indication: IMMUNE THROMBOCYTOPENIA
     Dosage: 50 MG
     Route: 048
     Dates: start: 20191028

REACTIONS (4)
  - Liver disorder [Unknown]
  - Joint swelling [Unknown]
  - Abdominal distension [Unknown]
  - Platelet count increased [Unknown]

NARRATIVE: CASE EVENT DATE: 201912
